FAERS Safety Report 16002679 (Version 1)
Quarter: 2019Q1

REPORT INFORMATION
  Report Type: Spontaneous
  Country: US (occurrence: US)
  Receive Date: 20190225
  Receipt Date: 20190225
  Transmission Date: 20190418
  Serious: No
  Sender: FDA-Public Use
  Company Number: US-SA-2019SA045871

PATIENT
  Age: 64 Year
  Sex: Male

DRUGS (3)
  1. LANTUS [Suspect]
     Active Substance: INSULIN GLARGINE
     Dosage: 60 U
  2. VICTOZA [Concomitant]
     Active Substance: LIRAGLUTIDE
  3. LANTUS [Suspect]
     Active Substance: INSULIN GLARGINE
     Dosage: 40 U

REACTIONS (1)
  - Blood glucose decreased [Unknown]
